FAERS Safety Report 17143148 (Version 1)
Quarter: 2019Q4

REPORT INFORMATION
  Report Type: Spontaneous
  Country: JP (occurrence: JP)
  Receive Date: 20191212
  Receipt Date: 20191212
  Transmission Date: 20200122
  Serious: Yes (Death)
  Sender: FDA-Public Use
  Company Number: JP-TEVA-2019-JP-1149576

PATIENT
  Age: 5 Decade
  Sex: Female
  Weight: 76.9 kg

DRUGS (8)
  1. DUROTEP MT PATCH [Interacting]
     Active Substance: FENTANYL
     Indication: PAIN
     Dosage: FENTANYL: 4.20 MG; ADDITIONAL INFO: OVERDOSE,MISUSE
     Route: 062
  2. CAFFEINE. [Concomitant]
     Active Substance: CAFFEINE
     Route: 048
  3. PROMETHAZINE [Concomitant]
     Active Substance: PROMETHAZINE HYDROCHLORIDE
     Route: 048
  4. CELECOX [Concomitant]
     Active Substance: CELECOXIB
     Indication: PAIN
     Dosage: CELECOXIB: 200 MG
     Route: 048
  5. ESTAZOLAM. [Suspect]
     Active Substance: ESTAZOLAM
     Route: 048
  6. SERTRALINE [Interacting]
     Active Substance: SERTRALINE HYDROCHLORIDE
     Route: 048
  7. ACETAMINOPHEN. [Suspect]
     Active Substance: ACETAMINOPHEN
     Indication: PAIN
     Route: 048
  8. ALLYLISOPROPYLACETYLUREA [Concomitant]
     Active Substance: APRONALIDE
     Route: 048

REACTIONS (7)
  - Serotonin syndrome [Fatal]
  - Pulmonary congestion [Fatal]
  - Pulmonary oedema [Fatal]
  - Toxicity to various agents [Fatal]
  - Intentional overdose [Fatal]
  - Drug interaction [Fatal]
  - Intentional product misuse [Fatal]
